FAERS Safety Report 10057175 (Version 1)
Quarter: 2014Q2

REPORT INFORMATION
  Report Type: Report from Study
  Country: JP (occurrence: JP)
  Receive Date: 20140403
  Receipt Date: 20140403
  Transmission Date: 20141212
  Serious: Yes (Death)
  Sender: FDA-Public Use
  Company Number: JP-CUBIST PHARMACEUTICAL, INC.-2014CBST000441

PATIENT
  Sex: 0

DRUGS (11)
  1. CUBICIN [Suspect]
     Indication: ENTEROCOCCAL INFECTION
     Dosage: 6 MG/KG, ONCE DAILY
     Route: 041
     Dates: start: 20140107, end: 20140107
  2. CUBICIN [Suspect]
     Indication: SKIN INFECTION
  3. CUBICIN [Suspect]
     Indication: SOFT TISSUE INFECTION
  4. CEFTAZIDIME [Concomitant]
     Indication: ENTEROCOCCAL INFECTION
     Dosage: 1 G, QD
     Route: 041
     Dates: start: 20140102, end: 20140109
  5. CEFTAZIDIME [Concomitant]
     Indication: SKIN INFECTION
  6. CEFTAZIDIME [Concomitant]
     Indication: SOFT TISSUE INFECTION
  7. FUNGUARD [Concomitant]
     Indication: ENTEROCOCCAL INFECTION
     Dosage: 150 MG, QD
     Route: 041
     Dates: start: 20131231, end: 20140123
  8. FUNGUARD [Concomitant]
     Indication: SKIN INFECTION
  9. FUNGUARD [Concomitant]
     Indication: SOFT TISSUE INFECTION
  10. NEXIUM                             /01479302/ [Concomitant]
     Indication: PROPHYLAXIS
     Dosage: 20 MG, ONCE DAILY
     Route: 048
     Dates: start: 20140107, end: 20140202
  11. BISOLVON [Concomitant]
     Indication: PROPHYLAXIS
     Dosage: 4 MG, TID
     Route: 048
     Dates: start: 20140107, end: 20140202

REACTIONS (3)
  - Death [Fatal]
  - Overdose [Unknown]
  - Drug ineffective [Unknown]
